FAERS Safety Report 8404339-4 (Version None)
Quarter: 2012Q2

REPORT INFORMATION
  Report Type: 
  Country: None (occurrence: None)
  Receive Date: 20120601
  Receipt Date: 20120523
  Transmission Date: 20120825
  Serious: Yes (Hospitalization, Other)
  Sender: FDA-Public Use
  Company Number: JP-VERTEX PHARMACEUTICALS INC.-AE-2012-007785

PATIENT
  Age: 62 Year
  Sex: Male

DRUGS (10)
  1. PEGINTERFERON ALFA-2B [Concomitant]
     Indication: HEPATITIS C
     Route: 051
     Dates: start: 20120215
  2. PROMACTA [Concomitant]
     Route: 048
  3. TELAVIC (TELAPREVIR) [Suspect]
     Indication: HEPATITIS C
     Route: 048
     Dates: start: 20120215, end: 20120221
  4. TELAVIC (TELAPREVIR) [Suspect]
     Route: 048
     Dates: start: 20120222, end: 20120509
  5. RIBAVIRIN [Concomitant]
     Route: 048
     Dates: start: 20120404
  6. RABEPRAZOLE SODIUM [Concomitant]
     Route: 048
  7. HIRUDOID [Concomitant]
     Route: 051
     Dates: start: 20120215
  8. RIBAVIRIN [Concomitant]
     Indication: HEPATITIS C
     Route: 048
     Dates: start: 20120215, end: 20120224
  9. RIBAVIRIN [Concomitant]
     Route: 048
     Dates: start: 20120225, end: 20120327
  10. RIBAVIRIN [Concomitant]
     Route: 048
     Dates: start: 20120328, end: 20120403

REACTIONS (3)
  - DECREASED APPETITE [None]
  - PANCREATITIS [None]
  - DIZZINESS [None]
